FAERS Safety Report 22035837 (Version 1)
Quarter: 2023Q1

REPORT INFORMATION
  Report Type: Spontaneous
  Country: US (occurrence: None)
  Receive Date: 20230222
  Receipt Date: 20230222
  Transmission Date: 20230418
  Serious: Yes (Hospitalization)
  Sender: FDA-Public Use
  Company Number: None

PATIENT
  Sex: Female

DRUGS (1)
  1. H.P. ACTHAR [Suspect]
     Active Substance: CORTICOTROPIN
     Dosage: OTHER STRENGTH : 80 U/ML;?
     Route: 058

REACTIONS (4)
  - Chest pain [None]
  - Chest discomfort [None]
  - Tachycardia [None]
  - Dyspnoea [None]
